FAERS Safety Report 9931196 (Version 2)
Quarter: 2015Q4

REPORT INFORMATION
  Report Type: Report from Study
  Country: US (occurrence: US)
  Receive Date: 20140228
  Receipt Date: 20151127
  Transmission Date: 20160305
  Serious: Yes (Other)
  Sender: FDA-Public Use
  Company Number: US-ROCHE-1338568

PATIENT
  Sex: Male

DRUGS (5)
  1. AVASTIN [Suspect]
     Active Substance: BEVACIZUMAB
     Indication: PRODUCT USED FOR UNKNOWN INDICATION
     Route: 050
  2. AVASTIN [Suspect]
     Active Substance: BEVACIZUMAB
     Route: 050
  3. LUCENTIS [Suspect]
     Active Substance: RANIBIZUMAB
     Indication: CHOROIDAL NEOVASCULARISATION
     Route: 050
  4. CIPROFLOXACIN. [Concomitant]
     Active Substance: CIPROFLOXACIN
  5. AVASTIN [Suspect]
     Active Substance: BEVACIZUMAB
     Route: 050

REACTIONS (14)
  - Discomfort [Unknown]
  - Off label use [Unknown]
  - Drug ineffective [Unknown]
  - Visual acuity reduced [Unknown]
  - Visual impairment [Unknown]
  - Eye swelling [Not Recovered/Not Resolved]
  - Ocular discomfort [Unknown]
  - Road traffic accident [Unknown]
  - Eye pruritus [Unknown]
  - Overdose [Unknown]
  - Dry eye [Unknown]
  - Vision blurred [Unknown]
  - Photopsia [Unknown]
  - Vitreous floaters [Unknown]
